FAERS Safety Report 19705548 (Version 1)
Quarter: 2021Q3

REPORT INFORMATION
  Report Type: Other
  Country: TW (occurrence: TW)
  Receive Date: 20210816
  Receipt Date: 20210816
  Transmission Date: 20211014
  Serious: Yes (Other)
  Sender: FDA-Public Use
  Company Number: TW-ROCHE-2890045

PATIENT

DRUGS (3)
  1. BEVACIZUMAB. [Suspect]
     Active Substance: BEVACIZUMAB
     Indication: BILE DUCT CANCER
     Dosage: 10 MG/KG
     Route: 065
  2. GEMCITABINE. [Suspect]
     Active Substance: GEMCITABINE
     Indication: BILE DUCT CANCER
     Dosage: (1000 MG/M2/DAY; DAYS 2, 8),
     Route: 065
  3. CISPLATIN. [Suspect]
     Active Substance: CISPLATIN
     Indication: BILE DUCT CANCER
     Dosage: (25 MG/M2; DAY 2, 8).
     Route: 065

REACTIONS (11)
  - Thrombocytopenia [Unknown]
  - Vomiting [Unknown]
  - Rash [Unknown]
  - Neuropathy peripheral [Unknown]
  - Hepatobiliary disease [Unknown]
  - Hypertension [Unknown]
  - Neutropenia [Unknown]
  - Nausea [Unknown]
  - Alopecia [Unknown]
  - Anaemia [Unknown]
  - Constipation [Unknown]
